FAERS Safety Report 13794595 (Version 2)
Quarter: 2017Q3

REPORT INFORMATION
  Report Type: Spontaneous
  Country: US (occurrence: US)
  Receive Date: 20170726
  Receipt Date: 20170809
  Transmission Date: 20171127
  Serious: No
  Sender: FDA-Public Use
  Company Number: US-PFIZER INC-2017321978

PATIENT
  Age: 57 Year
  Sex: Female

DRUGS (3)
  1. PRISTIQ EXTENDED-RELEASE [Suspect]
     Active Substance: DESVENLAFAXINE SUCCINATE
     Indication: PAIN
     Dosage: 100 MG, UNK
     Dates: start: 201704, end: 2017
  2. PRISTIQ EXTENDED-RELEASE [Suspect]
     Active Substance: DESVENLAFAXINE SUCCINATE
     Dosage: 25 MG, UNK
  3. PRISTIQ EXTENDED-RELEASE [Suspect]
     Active Substance: DESVENLAFAXINE SUCCINATE
     Dosage: 50 MG, UNK
     Dates: start: 2017

REACTIONS (6)
  - Somnolence [Unknown]
  - Nausea [Unknown]
  - Head discomfort [Unknown]
  - Withdrawal syndrome [Not Recovered/Not Resolved]
  - Drug ineffective for unapproved indication [Unknown]
  - Dizziness [Unknown]

NARRATIVE: CASE EVENT DATE: 2017
